FAERS Safety Report 5708565-4 (Version None)
Quarter: 2008Q2

REPORT INFORMATION
  Report Type: 
  Country: None (occurrence: None)
  Receive Date: 20080417
  Receipt Date: 20080411
  Transmission Date: 20081010
  Serious: Yes (Hospitalization)
  Sender: FDA-Public Use
  Company Number: US-ALLERGAN-0804390US

PATIENT
  Age: 20 Year
  Sex: Female

DRUGS (5)
  1. BOTOX [Suspect]
     Indication: IMPAIRED GASTRIC EMPTYING
     Dosage: 80 UNITS, SINGLE
     Route: 050
     Dates: start: 20080408, end: 20080408
  2. LEXAPRO [Concomitant]
     Indication: DEPRESSION
  3. LEXAPRO [Concomitant]
     Indication: ANXIETY
  4. PROTONIX [Concomitant]
     Indication: IMPAIRED GASTRIC EMPTYING
  5. REGLAN [Concomitant]
     Indication: IMPAIRED GASTRIC EMPTYING

REACTIONS (6)
  - ABDOMINAL PAIN [None]
  - ANAEMIA [None]
  - INJECTION SITE ULCER [None]
  - NAUSEA [None]
  - PYREXIA [None]
  - VOMITING [None]
